FAERS Safety Report 24527690 (Version 10)
Quarter: 2025Q2

REPORT INFORMATION
  Report Type: Report from Study
  Country: CO (occurrence: CO)
  Receive Date: 20241021
  Receipt Date: 20250422
  Transmission Date: 20250717
  Serious: Yes (Other)
  Sender: TAKEDA
  Company Number: CO-TAKEDA-2024TUS097583

PATIENT
  Age: 2 Year
  Sex: Male
  Weight: 16 kg

DRUGS (2)
  1. IDURSULFASE [Suspect]
     Active Substance: IDURSULFASE
     Indication: Mucopolysaccharidosis II
     Dosage: 8 MILLIGRAM, 1/WEEK
     Dates: start: 20240920, end: 20250311
  2. IDURSULFASE [Suspect]
     Active Substance: IDURSULFASE
     Dosage: 9 MILLIGRAM, 1/WEEK

REACTIONS (12)
  - Venous injury [Unknown]
  - Product availability issue [Unknown]
  - Poor venous access [Unknown]
  - Infusion site extravasation [Unknown]
  - Malaise [Unknown]
  - Product dose omission issue [Unknown]
  - Treatment noncompliance [Unknown]
  - Skin irritation [Unknown]
  - Insurance issue [Unknown]
  - Weight increased [Unknown]
  - Hypersensitivity [Recovering/Resolving]
  - Diarrhoea [Unknown]

NARRATIVE: CASE EVENT DATE: 20240927
